FAERS Safety Report 5631407-2 (Version None)
Quarter: 2008Q1

REPORT INFORMATION
  Report Type: 
  Country: None (occurrence: None)
  Receive Date: 20080212
  Receipt Date: 20080204
  Transmission Date: 20080703
  Serious: Yes (Hospitalization, Other)
  Sender: FDA-Public Use
  Company Number: 2008SP002633

PATIENT
  Age: 47 Year
  Sex: Male

DRUGS (2)
  1. PEG-INTRON (PEFINTERFERON ALFA-2B) [Suspect]
     Indication: HEPATITIS C
     Dosage: SC
     Route: 058
     Dates: start: 20070803
  2. RIBAPAK [Suspect]
     Indication: HEPATITIS C
     Dosage: PO
     Route: 048
     Dates: start: 20070803

REACTIONS (9)
  - ASTHENIA [None]
  - DEPRESSION [None]
  - DIZZINESS [None]
  - HEPATIC ENZYME DECREASED [None]
  - HEPATIC FAILURE [None]
  - LIVER TRANSPLANT [None]
  - RED BLOOD CELL COUNT DECREASED [None]
  - REFUSAL OF TREATMENT BY PATIENT [None]
  - WHITE BLOOD CELL COUNT DECREASED [None]
